FAERS Safety Report 12060735 (Version 1)
Quarter: 2016Q1

REPORT INFORMATION
  Report Type: Report from Study
  Country: US (occurrence: US)
  Receive Date: 20160210
  Receipt Date: 20160210
  Transmission Date: 20160526
  Serious: Yes (Hospitalization)
  Sender: FDA-Public Use
  Company Number: US-GILEAD-2016-0191940

PATIENT
  Age: 57 Year
  Sex: Female

DRUGS (3)
  1. AMBRISENTAN [Suspect]
     Active Substance: AMBRISENTAN
     Indication: PRODUCT USED FOR UNKNOWN INDICATION
     Dosage: 5 MG, QD
     Route: 065
     Dates: start: 20150512
  2. WARFARIN [Suspect]
     Active Substance: WARFARIN
     Indication: PRODUCT USED FOR UNKNOWN INDICATION
     Route: 065
  3. CARDIZEM LA [Concomitant]
     Active Substance: DILTIAZEM HYDROCHLORIDE

REACTIONS (7)
  - Hypotension [Unknown]
  - Dyspnoea [Unknown]
  - Fatigue [Unknown]
  - Oedema [Recovered/Resolved]
  - Dizziness [Unknown]
  - Heart rate decreased [Unknown]
  - Arrhythmia [Unknown]
